FAERS Safety Report 16002218 (Version 1)
Quarter: 2019Q1

REPORT INFORMATION
  Report Type: Spontaneous
  Country: US (occurrence: US)
  Receive Date: 20190225
  Receipt Date: 20190225
  Transmission Date: 20190418
  Serious: No
  Sender: FDA-Public Use
  Company Number: US-IGSA-SR10006428

PATIENT
  Age: 69 Year
  Sex: Female
  Weight: 71 kg

DRUGS (14)
  1. PREVAGEN [Concomitant]
     Active Substance: DIETARY SUPPLEMENT
  2. PROLASTIN-C [Suspect]
     Active Substance: .ALPHA.1-PROTEINASE INHIBITOR HUMAN
     Indication: ALPHA-1 ANTI-TRYPSIN DEFICIENCY
     Dosage: 4260 MG, Q.WK.
     Route: 042
     Dates: start: 20180523
  3. BENADRYL [Concomitant]
     Active Substance: DIPHENHYDRAMINE HYDROCHLORIDE
     Indication: PREMEDICATION
  4. PREDNISONE. [Concomitant]
     Active Substance: PREDNISONE
  5. CLOPIDOGREL BISULFATE. [Concomitant]
     Active Substance: CLOPIDOGREL BISULFATE
  6. LIPITOR [Concomitant]
     Active Substance: ATORVASTATIN CALCIUM
  7. BUDESONIDE. [Concomitant]
     Active Substance: BUDESONIDE
  8. IRBESARTAN. [Concomitant]
     Active Substance: IRBESARTAN
  9. MONTELUKAST SODIUM. [Concomitant]
     Active Substance: MONTELUKAST SODIUM
  10. PROLASTIN-C [Suspect]
     Active Substance: .ALPHA.1-PROTEINASE INHIBITOR HUMAN
     Dosage: 4260 MG, Q.WK.
     Dates: start: 20180530
  11. ALLERGY RELIEF                     /00884302/ [Concomitant]
  12. DUONEB [Concomitant]
     Active Substance: ALBUTEROL SULFATE\IPRATROPIUM BROMIDE
  13. ASPIRIN 81 [Concomitant]
     Active Substance: ASPIRIN
  14. ERYTHROMYCIN BASE [Concomitant]
     Active Substance: ERYTHROMYCIN

REACTIONS (3)
  - Urticaria [Not Recovered/Not Resolved]
  - Pruritus [Not Recovered/Not Resolved]
  - Erythema [Not Recovered/Not Resolved]

NARRATIVE: CASE EVENT DATE: 20180526
